FAERS Safety Report 7910675-8 (Version None)
Quarter: 2011Q4

REPORT INFORMATION
  Report Type: 
  Country: None (occurrence: None)
  Receive Date: 20111111
  Receipt Date: 20111109
  Transmission Date: 20120403
  Serious: Yes (Death, Other)
  Sender: FDA-Public Use
  Company Number: US-ABBOTT-11P-163-0872633-00

PATIENT
  Sex: Male

DRUGS (4)
  1. UNKNOWN MEDICATION [Concomitant]
     Indication: HYPERTENSION
  2. HUMIRA [Suspect]
     Indication: CROHN'S DISEASE
     Route: 058
     Dates: start: 20080101, end: 20101118
  3. UNKNOWN MEDICATION [Concomitant]
     Indication: DIABETES MELLITUS
  4. UNKNOWN MEDICATION [Concomitant]
     Indication: CARDIAC DISORDER

REACTIONS (3)
  - MYOCARDIAL INFARCTION [None]
  - THROMBOSIS [None]
  - DEVICE RELATED INFECTION [None]
